FAERS Safety Report 22658509 (Version 1)
Quarter: 2023Q2

REPORT INFORMATION
  Report Type: Report from Study
  Country: CA (occurrence: CA)
  Receive Date: 20230630
  Receipt Date: 20230630
  Transmission Date: 20230721
  Serious: Yes (Death)
  Sender: FDA-Public Use
  Company Number: CA-002147023-NVSC2022CA154510

PATIENT
  Age: 44 Year
  Sex: Male

DRUGS (4)
  1. VOTRIENT [Interacting]
     Active Substance: PAZOPANIB HYDROCHLORIDE
     Indication: Soft tissue sarcoma
     Dosage: UNK
     Route: 048
     Dates: start: 20220810
  2. GEMCITABINE [Suspect]
     Active Substance: GEMCITABINE
     Indication: Leiomyosarcoma metastatic
     Dosage: UNK
     Route: 065
     Dates: start: 202108, end: 202109
  3. PANTOPRAZOLE [Interacting]
     Active Substance: PANTOPRAZOLE
     Indication: Product used for unknown indication
     Dosage: UNK
     Route: 065
  4. DOXORUBICIN [Suspect]
     Active Substance: DOXORUBICIN
     Indication: Leiomyosarcoma metastatic
     Dosage: UNK
     Route: 065
     Dates: start: 20210211, end: 20210513

REACTIONS (5)
  - Death [Fatal]
  - Drug intolerance [Unknown]
  - Product use in unapproved indication [Unknown]
  - Drug interaction [Unknown]
  - Drug ineffective [Recovered/Resolved with Sequelae]

NARRATIVE: CASE EVENT DATE: 20210101
